FAERS Safety Report 10375167 (Version 2)
Quarter: 2014Q4

REPORT INFORMATION
  Report Type: Other
  Country: US (occurrence: US)
  Receive Date: 20140811
  Receipt Date: 20141010
  Transmission Date: 20150528
  Serious: Yes (Other)
  Sender: FDA-Public Use
  Company Number: US-SHIRE-US201404544

PATIENT
  Age: 75 Year
  Sex: Female

DRUGS (2)
  1. CINRYZE [Suspect]
     Active Substance: HUMAN C1-ESTERASE INHIBITOR
     Indication: PROPHYLAXIS
     Dosage: UNK (EXTRA DOSE)
     Route: 042
     Dates: start: 20140716
  2. CINRYZE [Suspect]
     Active Substance: HUMAN C1-ESTERASE INHIBITOR
     Indication: HEREDITARY ANGIOEDEMA
     Dosage: UNK, OTHER (1000 UNITS EVERY 3-4 DAYS)
     Route: 042
     Dates: start: 20130123

REACTIONS (4)
  - Lip swelling [Unknown]
  - Pharyngeal oedema [Unknown]
  - Swelling [Unknown]
  - Product use issue [Unknown]

NARRATIVE: CASE EVENT DATE: 20140716
